FAERS Safety Report 9924071 (Version 2)
Quarter: 2016Q2

REPORT INFORMATION
  Report Type: Report from Study
  Country: US (occurrence: US)
  Receive Date: 20140225
  Receipt Date: 20160503
  Transmission Date: 20160815
  Serious: Yes (Other)
  Sender: FDA-Public Use
  Company Number: US-ROCHE-1339553

PATIENT
  Sex: Female

DRUGS (5)
  1. LUCENTIS [Suspect]
     Active Substance: RANIBIZUMAB
     Indication: NEOVASCULAR AGE-RELATED MACULAR DEGENERATION
     Dosage: BOTH EYES?0.5 MG/0.05 ML
     Route: 050
  2. AKTEN [Concomitant]
     Active Substance: LIDOCAINE HYDROCHLORIDE
  3. OCUFLOX (UNITED STATES) [Concomitant]
  4. SYSTANE (HYPROMELLOSE 2910 (4000 MPA.S)) [Concomitant]
     Active Substance: HYPROMELLOSE 2910 (4000 MPA.S)
  5. AVASTIN [Suspect]
     Active Substance: BEVACIZUMAB
     Indication: PRODUCT USED FOR UNKNOWN INDICATION
     Dosage: OS, LEFT EYE
     Route: 050

REACTIONS (9)
  - Visual impairment [Unknown]
  - Detachment of retinal pigment epithelium [Unknown]
  - Eye pruritus [Unknown]
  - Frustration tolerance decreased [Unknown]
  - Vitreous detachment [Unknown]
  - Vitreous floaters [Unknown]
  - Off label use [Unknown]
  - Retinal oedema [Unknown]
  - Metamorphopsia [Unknown]
